FAERS Safety Report 21781111 (Version 1)
Quarter: 2022Q4

REPORT INFORMATION
  Report Type: Spontaneous
  Country: US (occurrence: US)
  Receive Date: 20221227
  Receipt Date: 20221227
  Transmission Date: 20230113
  Serious: Yes (Death)
  Sender: FDA-Public Use
  Company Number: US-CELLTRION INC.-2022US021576

PATIENT

DRUGS (1)
  1. TRUXIMA [Suspect]
     Active Substance: RITUXIMAB-ABBS
     Indication: B-cell lymphoma
     Dosage: 793 MG EVERY 21 DAYS
     Dates: start: 20200528

REACTIONS (1)
  - Death [Fatal]

NARRATIVE: CASE EVENT DATE: 20200628
